FAERS Safety Report 13845664 (Version 1)
Quarter: 2017Q3

REPORT INFORMATION
  Report Type: Spontaneous
  Country: US (occurrence: US)
  Receive Date: 20170808
  Receipt Date: 20170808
  Transmission Date: 20171127
  Serious: No
  Sender: FDA-Public Use
  Company Number: US-ROCHE-800104

PATIENT
  Sex: Female

DRUGS (1)
  1. BONIVA [Suspect]
     Active Substance: IBANDRONATE SODIUM
     Indication: PRODUCT USED FOR UNKNOWN INDICATION
     Route: 048

REACTIONS (8)
  - Dyspepsia [Unknown]
  - Abdominal pain upper [Unknown]
  - Pain in extremity [Unknown]
  - Blood glucose increased [Unknown]
  - Dysphagia [Unknown]
  - Constipation [Unknown]
  - Headache [Unknown]
  - Feeling abnormal [Unknown]
